FAERS Safety Report 5715969-2 (Version None)
Quarter: 2008Q2

REPORT INFORMATION
  Report Type: 
  Country: None (occurrence: None)
  Receive Date: 20080424
  Receipt Date: 20080421
  Transmission Date: 20081010
  Serious: Yes (Other)
  Sender: FDA-Public Use
  Company Number: US-ASTRAZENECA-2008UW08094

PATIENT
  Age: 69 Year
  Sex: Female
  Weight: 68.9 kg

DRUGS (10)
  1. ARIMIDEX [Suspect]
     Indication: BREAST CANCER
     Route: 048
     Dates: start: 20030101, end: 20071101
  2. ARIMIDEX [Suspect]
     Route: 048
     Dates: start: 20070101, end: 20080101
  3. ARIMIDEX [Suspect]
     Route: 048
     Dates: start: 20080101, end: 20080401
  4. COREG [Concomitant]
  5. LANOXIN [Concomitant]
  6. ZETIA [Concomitant]
  7. LASIX [Concomitant]
  8. CHLORKON [Concomitant]
  9. BENECOR [Concomitant]
  10. FOSAMAX [Concomitant]

REACTIONS (5)
  - ANTINUCLEAR ANTIBODY POSITIVE [None]
  - DYSKINESIA [None]
  - GAIT DISTURBANCE [None]
  - MUSCULOSKELETAL DISCOMFORT [None]
  - MUSCULOSKELETAL STIFFNESS [None]
